FAERS Safety Report 6720247-9 (Version None)
Quarter: 2010Q2

REPORT INFORMATION
  Report Type: 
  Country: None (occurrence: None)
  Receive Date: 20100511
  Receipt Date: 20100504
  Transmission Date: 20101027
  Serious: Yes (Hospitalization)
  Sender: FDA-Public Use
  Company Number: PHHO2010FR06906

PATIENT
  Sex: Male

DRUGS (2)
  1. NEORAL [Suspect]
     Indication: RENAL TRANSPLANT
     Dosage: 250 MG, BID
     Route: 048
     Dates: start: 20100210
  2. MYFORTIC [Concomitant]
     Indication: RENAL TRANSPLANT
     Dosage: 720 MG, BID
     Route: 048
     Dates: start: 20100210

REACTIONS (5)
  - ESCHERICHIA URINARY TRACT INFECTION [None]
  - HAEMATOMA EVACUATION [None]
  - HAEMATOMA INFECTION [None]
  - PERIRENAL HAEMATOMA [None]
  - SUPERINFECTION [None]
